FAERS Safety Report 12431885 (Version 2)
Quarter: 2016Q2

REPORT INFORMATION
  Report Type: Report from Study
  Country: AR (occurrence: AR)
  Receive Date: 20160603
  Receipt Date: 20160617
  Transmission Date: 20160815
  Serious: Yes (Other)
  Sender: FDA-Public Use
  Company Number: PHHY2016AR074119

PATIENT
  Sex: Female

DRUGS (1)
  1. ONBREZ BREEZHALER [Suspect]
     Active Substance: INDACATEROL
     Indication: ASTHMA
     Dosage: (1 OR 2 DAILY)
     Route: 065

REACTIONS (7)
  - Agitation [Recovering/Resolving]
  - Asthmatic crisis [Recovering/Resolving]
  - Product use issue [Unknown]
  - Drug ineffective [Recovering/Resolving]
  - Incorrect dose administered [Unknown]
  - Diabetes mellitus [Unknown]
  - Dyspnoea [Recovering/Resolving]
